FAERS Safety Report 15885792 (Version 2)
Quarter: 2019Q1

REPORT INFORMATION
  Report Type: Report from Study
  Country: US (occurrence: US)
  Receive Date: 20190129
  Receipt Date: 20190205
  Transmission Date: 20190417
  Serious: Yes (Hospitalization)
  Sender: FDA-Public Use
  Company Number: US-PFIZER INC-2019029757

PATIENT
  Age: 49 Year
  Sex: Female
  Weight: 60 kg

DRUGS (12)
  1. FULVESTRANT. [Suspect]
     Active Substance: FULVESTRANT
     Indication: BREAST CANCER
     Dosage: EVERY 28 DAYS
     Route: 030
     Dates: start: 20181016, end: 20181212
  2. GABAPENTIN. [Concomitant]
     Active Substance: GABAPENTIN
     Indication: BACK PAIN
     Dosage: 600 MG, DAILY
     Route: 048
     Dates: start: 20181014
  3. PALBOCICLIB [Suspect]
     Active Substance: PALBOCICLIB
     Indication: BREAST CANCER
     Dosage: DAILY FOR 3 WEEKS THEN 1 WEEK OFF
     Route: 048
     Dates: start: 20181016, end: 20190101
  4. LEXAPRO [Concomitant]
     Active Substance: ESCITALOPRAM OXALATE
     Indication: DEPRESSION
     Dosage: 10 MG, DAILY
     Route: 048
     Dates: start: 20190108
  5. LORAZEPAM. [Concomitant]
     Active Substance: LORAZEPAM
     Indication: NAUSEA
     Dosage: 0.5 MG, AT BEDTIME (QHS) AS NEEDED
     Route: 048
     Dates: start: 20181017
  6. SANCUSO [Concomitant]
     Active Substance: GRANISETRON
     Indication: NAUSEA
     Dosage: 3.1 MG, WEEKLY
     Route: 061
     Dates: start: 20181018
  7. DEXAMETHASONE. [Concomitant]
     Active Substance: DEXAMETHASONE
     Indication: ORAL DYSAESTHESIA
     Dosage: 0.5 MG, 4X/DAY
     Route: 048
     Dates: start: 20181218
  8. OXYCONTIN [Concomitant]
     Active Substance: OXYCODONE HYDROCHLORIDE
     Indication: BACK PAIN
     Dosage: 10 MG, EVERY 8 HOURS
     Route: 048
     Dates: start: 20170915
  9. PF-05212384 [Suspect]
     Active Substance: GEDATOLISIB
     Indication: BREAST CANCER
     Dosage: WEEKLY
     Route: 041
     Dates: start: 20181016, end: 20190102
  10. PREDNISONE. [Concomitant]
     Active Substance: PREDNISONE
     Indication: RASH
     Dosage: 1 MG, DAILY
     Route: 048
     Dates: start: 20181219, end: 20190107
  11. OXYCODONE [Concomitant]
     Active Substance: OXYCODONE
     Indication: BACK PAIN
     Dosage: 5-10MG, EVERY 4 HRS
     Route: 048
     Dates: start: 20170727
  12. FAMOTIDINE. [Concomitant]
     Active Substance: FAMOTIDINE
     Indication: GASTROOESOPHAGEAL REFLUX DISEASE
     Dosage: 20 MG, DAILY
     Route: 048
     Dates: start: 20181023

REACTIONS (2)
  - Hyponatraemia [Recovering/Resolving]
  - Abdominal pain [Recovering/Resolving]

NARRATIVE: CASE EVENT DATE: 20190117
